FAERS Safety Report 25948795 (Version 1)
Quarter: 2025Q4

REPORT INFORMATION
  Report Type: Spontaneous
  Country: US (occurrence: US)
  Receive Date: 20251022
  Receipt Date: 20251022
  Transmission Date: 20260117
  Serious: No
  Sender: GALPHARM INTERNATIONAL
  Company Number: US-PERRIGO-24US011579

PATIENT
  Age: 8 Year
  Sex: Female

DRUGS (1)
  1. CHILDRENS CETIRIZINE HYDROCHLORIDE ALLERGY [Suspect]
     Active Substance: CETIRIZINE HYDROCHLORIDE
     Indication: Hypersensitivity
     Dosage: 10 MG, SINGLE
     Route: 048
     Dates: start: 20241215, end: 20241215

REACTIONS (3)
  - Oral mucosal eruption [Recovering/Resolving]
  - Condition aggravated [Not Recovered/Not Resolved]
  - Product use in unapproved indication [Unknown]

NARRATIVE: CASE EVENT DATE: 20241215
